FAERS Safety Report 21714639 (Version 1)
Quarter: 2022Q4

REPORT INFORMATION
  Report Type: Spontaneous
  Country: US (occurrence: US)
  Receive Date: 20221212
  Receipt Date: 20221212
  Transmission Date: 20230113
  Serious: Yes (Other)
  Sender: FDA-Public Use
  Company Number: US-ORGANON-O2212USA000641

PATIENT
  Sex: Female

DRUGS (1)
  1. NEXPLANON [Suspect]
     Active Substance: ETONOGESTREL
     Dosage: 1 IMPLANT OF 68MG
     Route: 059
     Dates: start: 2022, end: 202210

REACTIONS (3)
  - Device expulsion [Recovered/Resolved]
  - Implant site cyst [Unknown]
  - Implant site infection [Unknown]

NARRATIVE: CASE EVENT DATE: 20220101
